FAERS Safety Report 5359225-3 (Version None)
Quarter: 2007Q2

REPORT INFORMATION
  Report Type: 
  Country: None (occurrence: None)
  Receive Date: 20070615
  Receipt Date: 20070611
  Transmission Date: 20071010
  Serious: Yes (Life-Threatening)
  Sender: FDA-Public Use
  Company Number: FR-ASTRAZENECA-2007CG00891

PATIENT
  Age: 30 Year
  Sex: Female

DRUGS (11)
  1. XYLOCAINE [Suspect]
     Route: 008
     Dates: start: 20070411, end: 20070411
  2. XYLOCAINE [Suspect]
     Route: 008
     Dates: start: 20070411, end: 20070411
  3. ROPIVACAINE [Suspect]
     Route: 008
     Dates: start: 20070411, end: 20070411
  4. ROPIVACAINE [Suspect]
     Route: 008
     Dates: start: 20070411, end: 20070411
  5. ROPIVACAINE [Suspect]
     Route: 008
     Dates: start: 20070411, end: 20070411
  6. SYNTOCINON [Suspect]
     Dosage: 10 IU IN 50 MILLILITERS OF PHYSIOLOGICAL SALINE
     Route: 042
     Dates: start: 20070411, end: 20070411
  7. SYNTOCINON [Suspect]
     Dosage: 20 IU IN 500 ML OF PLASMOCYTES
     Route: 042
     Dates: start: 20070411, end: 20070411
  8. AUGMENTIN '125' [Suspect]
     Route: 042
     Dates: start: 20070411, end: 20070411
  9. SUFENTA [Suspect]
     Route: 008
     Dates: start: 20070411, end: 20070411
  10. SUFENTA [Suspect]
     Route: 008
     Dates: start: 20070411, end: 20070411
  11. SUFENTA [Suspect]
     Route: 042
     Dates: start: 20070411, end: 20070411

REACTIONS (1)
  - SHOCK [None]
